APPROVED DRUG PRODUCT: FROVATRIPTAN SUCCINATE
Active Ingredient: FROVATRIPTAN SUCCINATE
Strength: EQ 2.5MG BASE
Dosage Form/Route: TABLET;ORAL
Application: A216998 | Product #001 | TE Code: AB
Applicant: LEADING PHARMA LLC
Approved: Apr 16, 2025 | RLD: No | RS: No | Type: RX